FAERS Safety Report 24982230 (Version 1)
Quarter: 2025Q1

REPORT INFORMATION
  Report Type: Spontaneous
  Country: US (occurrence: US)
  Receive Date: 20250218
  Receipt Date: 20250218
  Transmission Date: 20250408
  Serious: No
  Sender: BAUSCH AND LOMB
  Company Number: US-BAUSCHBL-2025BNL002364

PATIENT
  Age: 74 Year
  Sex: Female

DRUGS (3)
  1. DEXAMETHASONE\NEOMYCIN\POLYMYXIN B SULFATE [Suspect]
     Active Substance: DEXAMETHASONE\NEOMYCIN\POLYMYXIN B SULFATE
     Indication: Hordeolum
     Route: 047
     Dates: start: 20250203, end: 20250205
  2. POLYMYXIN B SULFATE AND TRIMETHOPRIM [Suspect]
     Active Substance: POLYMYXIN B SULFATE\TRIMETHOPRIM SULFATE
     Indication: Hordeolum
     Route: 047
     Dates: start: 20250205
  3. ERYTHROMYCIN [Concomitant]
     Active Substance: ERYTHROMYCIN
     Indication: Product used for unknown indication
     Route: 047

REACTIONS (3)
  - Eye pruritus [Recovered/Resolved]
  - Lacrimation increased [Recovered/Resolved]
  - Reaction to preservatives [Unknown]

NARRATIVE: CASE EVENT DATE: 20250201
